FAERS Safety Report 6458492-2 (Version None)
Quarter: 2009Q4

REPORT INFORMATION
  Report Type: 
  Country: None (occurrence: None)
  Receive Date: 20091126
  Receipt Date: 20091118
  Transmission Date: 20100525
  Serious: Yes (Hospitalization)
  Sender: FDA-Public Use
  Company Number: US-BIOGENIDEC-2008BI015879

PATIENT
  Age: 57 Year
  Sex: Female

DRUGS (2)
  1. AVONEX [Suspect]
     Indication: MULTIPLE SCLEROSIS
     Route: 030
     Dates: start: 20010126
  2. STEROIDS (NOS) [Concomitant]

REACTIONS (12)
  - CAUSTIC INJURY [None]
  - CHEST INJURY [None]
  - FALL [None]
  - GAIT DISTURBANCE [None]
  - LOSS OF CONSCIOUSNESS [None]
  - MOBILITY DECREASED [None]
  - MULTIPLE SCLEROSIS [None]
  - NERVE INJURY [None]
  - OSTEONECROSIS [None]
  - ROAD TRAFFIC ACCIDENT [None]
  - SKELETAL INJURY [None]
  - STRESS [None]
